FAERS Safety Report 24562637 (Version 5)
Quarter: 2025Q1

REPORT INFORMATION
  Report Type: Spontaneous
  Country: FR (occurrence: FR)
  Receive Date: 20241029
  Receipt Date: 20250131
  Transmission Date: 20250409
  Serious: Yes (Hospitalization, Other)
  Sender: APELLIS PHARMACEUTICALS
  Company Number: FR-BIOVITRUM-2024-FR-013763

PATIENT
  Weight: 54 kg

DRUGS (13)
  1. PEGCETACOPLAN [Suspect]
     Active Substance: PEGCETACOPLAN
     Indication: Paroxysmal nocturnal haemoglobinuria
     Dosage: TWICE PER WEEK
     Route: 058
     Dates: start: 202310
  2. PEGCETACOPLAN [Suspect]
     Active Substance: PEGCETACOPLAN
     Route: 058
     Dates: start: 20231114, end: 20241104
  3. PEGCETACOPLAN [Suspect]
     Active Substance: PEGCETACOPLAN
     Dates: start: 20231205, end: 20241030
  4. MORPHINE [Suspect]
     Active Substance: MORPHINE
     Indication: Headache
  5. TACROLIMUS [Concomitant]
     Active Substance: TACROLIMUS
     Indication: Product used for unknown indication
  6. ELTROMBOPAG OLAMINE [Concomitant]
     Active Substance: ELTROMBOPAG OLAMINE
     Indication: Product used for unknown indication
  7. PAROXETINE [Concomitant]
     Active Substance: PAROXETINE
     Indication: Product used for unknown indication
  8. LEVOTHYROXINE [Concomitant]
     Active Substance: LEVOTHYROXINE
     Indication: Product used for unknown indication
     Route: 048
  9. VITAMIN K [Concomitant]
     Active Substance: PHYTONADIONE
     Indication: Product used for unknown indication
  10. URSODIOL [Concomitant]
     Active Substance: URSODIOL
     Indication: Product used for unknown indication
  11. LEUCOVORIN CALCIUM [Concomitant]
     Active Substance: LEUCOVORIN CALCIUM
     Indication: Product used for unknown indication
  12. Solupred [Concomitant]
     Indication: Product used for unknown indication
  13. DOLIPRANE [Concomitant]
     Active Substance: ACETAMINOPHEN
     Indication: Product used for unknown indication

REACTIONS (9)
  - Headache [Recovered/Resolved]
  - Nausea [Unknown]
  - Vomiting [Unknown]
  - Respiratory disorder [Unknown]
  - Condition aggravated [Recovering/Resolving]
  - Aplastic anaemia [Unknown]
  - Sleep disorder [Unknown]
  - Altered state of consciousness [Unknown]
  - Acid base balance abnormal [Unknown]

NARRATIVE: CASE EVENT DATE: 20240201
